FAERS Safety Report 16693431 (Version 1)
Quarter: 2019Q3

REPORT INFORMATION
  Report Type: Spontaneous
  Country: NL (occurrence: NL)
  Receive Date: 20190812
  Receipt Date: 20190812
  Transmission Date: 20191004
  Serious: Yes (Hospitalization)
  Sender: FDA-Public Use
  Company Number: NL-TEVA-2019-NL-1091019

PATIENT
  Sex: Female
  Weight: 3 kg

DRUGS (6)
  1. KEPPRA [Suspect]
     Active Substance: LEVETIRACETAM
     Indication: EPILEPSY
     Dosage: 500-250-250
     Route: 064
     Dates: start: 2011, end: 20120330
  2. FYTOMENADION [Concomitant]
     Dosage: 10 MG/ML: PARENT ROUTE: INTRAVENOUS/ORAL
     Route: 064
  3. FOLIUMZUUR [Concomitant]
     Active Substance: FOLIC ACID
     Dosage: 5 MG, ONCE DAILY (QD)
     Route: 064
  4. LAMOTRIGINE. [Suspect]
     Active Substance: LAMOTRIGINE
     Indication: EPILEPSY
     Dosage: 50 MG, 3X/DAY (TID)
     Route: 064
     Dates: start: 2011, end: 20120330
  5. FERROFUMARAAT [Concomitant]
     Indication: ANAEMIA
     Dosage: 200 MG
     Route: 064
  6. VITAMIN K [Concomitant]
     Active Substance: PHYTONADIONE
     Route: 030
     Dates: start: 201203

REACTIONS (2)
  - Hypoventilation [Recovered/Resolved]
  - Maternal exposure during pregnancy [Unknown]

NARRATIVE: CASE EVENT DATE: 2011
